FAERS Safety Report 5513902-X (Version None)
Quarter: 2007Q4

REPORT INFORMATION
  Report Type: 
  Country: None (occurrence: None)
  Receive Date: 20071109
  Receipt Date: 20071109
  Transmission Date: 20080405
  Serious: Yes (Other)
  Sender: FDA-Public Use
  Company Number: None

PATIENT
  Age: 40 Year
  Sex: Female
  Weight: 74.8435 kg

DRUGS (1)
  1. DEPO-PROVERA [Suspect]
     Indication: CONTRACEPTION
     Dosage: 1 SHOT EVERY 3 MONTHS IM
     Route: 030
     Dates: start: 20070813, end: 20071108

REACTIONS (6)
  - ALOPECIA [None]
  - DYSPAREUNIA [None]
  - INSOMNIA [None]
  - LOSS OF LIBIDO [None]
  - NIGHT SWEATS [None]
  - VULVOVAGINAL DRYNESS [None]
